FAERS Safety Report 10205237 (Version 1)
Quarter: 2014Q2

REPORT INFORMATION
  Report Type: Spontaneous
  Country: GB (occurrence: GB)
  Receive Date: 20140529
  Receipt Date: 20140529
  Transmission Date: 20141212
  Serious: Yes (Hospitalization)
  Sender: FDA-Public Use
  Company Number: GB-TEVA-484130ISR

PATIENT
  Age: 53 Year
  Sex: Female

DRUGS (3)
  1. RIBAVIRIN [Suspect]
     Indication: HEPATITIS C
     Dosage: 1200 MILLIGRAM DAILY;
  2. PEGINTERFERON ALFA [Suspect]
     Indication: HEPATITIS C
     Route: 058
  3. TELAPREVIR [Suspect]
     Indication: HEPATITIS C
     Dosage: 2250 MILLIGRAM DAILY;

REACTIONS (1)
  - Thrombotic microangiopathy [Recovered/Resolved]
